FAERS Safety Report 5484896-0 (Version None)
Quarter: 2007Q4

REPORT INFORMATION
  Report Type: 
  Country: None (occurrence: None)
  Receive Date: 20071010
  Receipt Date: 20070925
  Transmission Date: 20080405
  Serious: Yes (Hospitalization)
  Sender: FDA-Public Use
  Company Number: B0489743A

PATIENT
  Age: 72 Year
  Sex: Female

DRUGS (4)
  1. DIGOXIN [Suspect]
  2. BETA-BLOCKER (FORMULATION UNKNOWN) (BETA BLOCKER) [Suspect]
  3. SPIRONOLACTONE [Suspect]
  4. ANGIOTENSIN II ANTAGONIST (FORMULATION UNKNOWN) ANGIOTENSIN II ANTAGON [Suspect]

REACTIONS (1)
  - HYPERKALAEMIA [None]
